FAERS Safety Report 8678950 (Version 3)
Quarter: 2013Q4

REPORT INFORMATION
  Report Type: Spontaneous
  Country: US (occurrence: US)
  Receive Date: 20120723
  Receipt Date: 20131105
  Transmission Date: 20140711
  Serious: Yes (Disabling)
  Sender: FDA-Public Use
  Company Number: US-009507513-1207USA006716

PATIENT
  Age: 45 Year
  Sex: Female
  Weight: 79.37 kg

DRUGS (2)
  1. SAPHRIS [Suspect]
     Indication: BIPOLAR DISORDER
     Dosage: 5 MG, HS
     Route: 060
  2. SAPHRIS [Suspect]
     Dosage: 10 MG, QD
     Route: 048
     Dates: start: 20111005, end: 20120612

REACTIONS (2)
  - Parkinson^s disease [Not Recovered/Not Resolved]
  - Underdose [Recovered/Resolved]
